FAERS Safety Report 6516268-1 (Version None)
Quarter: 2009Q4

REPORT INFORMATION
  Report Type: 
  Country: None (occurrence: None)
  Receive Date: 20091223
  Receipt Date: 20091218
  Transmission Date: 20100525
  Serious: Yes (Death, Other)
  Sender: FDA-Public Use
  Company Number: JP-BAYER-200913063BYL

PATIENT
  Age: 88 Year
  Sex: Female
  Weight: 53 kg

DRUGS (5)
  1. FLUDARA [Suspect]
     Indication: T-CELL PROLYMPHOCYTIC LEUKAEMIA
     Route: 041
     Dates: start: 20070501, end: 20070505
  2. DIOVAN [Concomitant]
     Route: 048
     Dates: end: 20070501
  3. NORVASC [Concomitant]
     Route: 048
     Dates: end: 20070501
  4. MAGMITT [Concomitant]
     Dosage: TOTAL DAILY DOSE: 990 MG
     Route: 048
     Dates: end: 20070501
  5. TRYPTANOL [Concomitant]
     Route: 048
     Dates: end: 20070501

REACTIONS (6)
  - CEREBRAL INFARCTION [None]
  - INFECTION [None]
  - INTERSTITIAL LUNG DISEASE [None]
  - NEUTROPHIL COUNT DECREASED [None]
  - PLATELET COUNT DECREASED [None]
  - WHITE BLOOD CELL COUNT DECREASED [None]
